FAERS Safety Report 7716964-4 (Version None)
Quarter: 2011Q3

REPORT INFORMATION
  Report Type: 
  Country: None (occurrence: None)
  Receive Date: 20110829
  Receipt Date: 20110823
  Transmission Date: 20111222
  Serious: Yes (Other)
  Sender: FDA-Public Use
  Company Number: SE-AMGEN-SWESP2011042826

PATIENT
  Sex: Female

DRUGS (5)
  1. CORTISONE ACETATE [Concomitant]
     Indication: POLYMYALGIA RHEUMATICA
  2. CALCIUM CARBONATE [Concomitant]
  3. PROLIA [Suspect]
     Indication: BONE DENSITY DECREASED
     Dosage: UNK
     Dates: start: 20110707
  4. PROLIA [Suspect]
     Indication: OSTEOPOROSIS
  5. VITAMIN D [Concomitant]

REACTIONS (4)
  - CONNECTIVE TISSUE DISORDER [None]
  - ARTHRALGIA [None]
  - MYALGIA [None]
  - PELVIC PAIN [None]
